FAERS Safety Report 20091410 (Version 3)
Quarter: 2021Q4

REPORT INFORMATION
  Report Type: Report from Study
  Country: BR (occurrence: BR)
  Receive Date: 20211119
  Receipt Date: 20211206
  Transmission Date: 20220303
  Serious: Yes (Other)
  Sender: FDA-Public Use
  Company Number: BR-UCBSA-2021038815

PATIENT
  Age: 54 Year
  Sex: Female
  Weight: 87 kg

DRUGS (10)
  1. CERTOLIZUMAB PEGOL [Interacting]
     Active Substance: CERTOLIZUMAB PEGOL
     Indication: Rheumatoid arthritis
     Dosage: 200 MILLIGRAM, EV 15 DAYS
     Route: 058
     Dates: start: 202104
  2. CERTOLIZUMAB PEGOL [Interacting]
     Active Substance: CERTOLIZUMAB PEGOL
     Indication: Psoriatic arthropathy
     Dosage: 400 MILLIGRAM, EV 30 DAYS
     Route: 058
     Dates: start: 202105
  3. VERAPAMIL [Concomitant]
     Active Substance: VERAPAMIL HYDROCHLORIDE
     Indication: Hypertension
     Dosage: 80 MILLIGRAM, UNK
     Route: 048
     Dates: start: 202104
  4. HISTAMIN [HISTAMINE] [Concomitant]
     Indication: Hypersensitivity
     Dosage: UNK
     Route: 048
  5. ATENOLOL [Concomitant]
     Active Substance: ATENOLOL
     Indication: Hypertension
     Dosage: 25 MILLIGRAM, UNK
     Route: 048
     Dates: start: 20211025
  6. PURAN [Concomitant]
     Active Substance: LEVOTHYROXINE SODIUM
     Indication: Hypothyroidism
     Dosage: 88 MILLIGRAM, UNK
     Route: 048
     Dates: start: 2016
  7. HYDROCHLOROTHIAZIDE [Concomitant]
     Active Substance: HYDROCHLOROTHIAZIDE
     Indication: Lymphoedema
     Dosage: 25 MILLIGRAM, ONCE DAILY (QD)
     Route: 048
  8. AMLODIPINE [Concomitant]
     Active Substance: AMLODIPINE BESYLATE
     Indication: Hypertension
  9. ENALAPRIL [Concomitant]
     Active Substance: ENALAPRIL
     Indication: Hypertension
  10. METHOTREXATE [Concomitant]
     Active Substance: METHOTREXATE
     Indication: Product used for unknown indication

REACTIONS (9)
  - Pruritus [Recovered/Resolved]
  - Arrhythmia [Recovered/Resolved]
  - Paraesthesia [Recovered/Resolved]
  - Blood pressure abnormal [Recovered/Resolved]
  - Arthralgia [Recovering/Resolving]
  - Hypersensitivity [Recovered/Resolved]
  - Anal pruritus [Recovered/Resolved]
  - Therapeutic response shortened [Unknown]
  - Drug interaction [Recovered/Resolved]

NARRATIVE: CASE EVENT DATE: 20210701
